FAERS Safety Report 4330845-8 (Version None)
Quarter: 2004Q1

REPORT INFORMATION
  Report Type: 
  Country: None (occurrence: None)
  Receive Date: 20040331
  Receipt Date: 20040316
  Transmission Date: 20041129
  Serious: Yes (Hospitalization)
  Sender: FDA-Public Use
  Company Number: CEL-2004-00344-ROC

PATIENT
  Age: 15 Year
  Sex: Female

DRUGS (1)
  1. DELSYM [Suspect]
     Indication: DRUG ABUSER
     Dosage: 1.5 BOTTLES ONCE PO
     Route: 048
     Dates: start: 20040312, end: 20040312

REACTIONS (11)
  - ABNORMAL BEHAVIOUR [None]
  - DIFFICULTY IN WALKING [None]
  - DRUG ABUSER [None]
  - DRUG SCREEN POSITIVE [None]
  - DYSARTHRIA [None]
  - EYE ROLLING [None]
  - FEAR [None]
  - HALLUCINATION [None]
  - INTENTIONAL OVERDOSE [None]
  - SPEECH DISORDER [None]
  - VISUAL ACUITY REDUCED [None]
